FAERS Safety Report 20113786 (Version 1)
Quarter: 2021Q4

REPORT INFORMATION
  Report Type: Spontaneous
  Country: US (occurrence: US)
  Receive Date: 20211125
  Receipt Date: 20211125
  Transmission Date: 20220304
  Serious: Yes (Other)
  Sender: FDA-Public Use
  Company Number: US-009507513-2110USA001055

PATIENT
  Age: 53 Year
  Sex: Female
  Weight: 110 kg

DRUGS (2)
  1. BRIDION [Interacting]
     Active Substance: SUGAMMADEX
     Indication: Neuromuscular blockade reversal
     Dosage: 150 MILLIGRAM
     Route: 042
  2. DILAUDID [Interacting]
     Active Substance: HYDROMORPHONE HYDROCHLORIDE
     Dosage: UNK

REACTIONS (5)
  - Anaphylactic reaction [Unknown]
  - Drug interaction [Unknown]
  - Blood pressure abnormal [Unknown]
  - Heart rate abnormal [Unknown]
  - Tryptase increased [Unknown]
